FAERS Safety Report 19433612 (Version 1)
Quarter: 2021Q2

REPORT INFORMATION
  Report Type: Other
  Country: US (occurrence: US)
  Receive Date: 20210617
  Receipt Date: 20210617
  Transmission Date: 20210717
  Serious: No
  Sender: FDA-Public Use
  Company Number: US-ROCHE-2807234

PATIENT
  Age: 17 Year
  Sex: Male

DRUGS (8)
  1. AMOXICILLIN. [Concomitant]
     Active Substance: AMOXICILLIN
     Indication: PHARYNGITIS STREPTOCOCCAL
  2. OXYGEN. [Concomitant]
     Active Substance: OXYGEN
     Indication: HYPOXIA
  3. REMDESIVIR. [Concomitant]
     Active Substance: REMDESIVIR
     Indication: TACHYPNOEA
     Dosage: LOADING DOSE ON DAY 1
     Route: 042
  4. TOCILIZUMAB. [Suspect]
     Active Substance: TOCILIZUMAB
     Indication: COVID-19
     Route: 065
  5. OXYGEN. [Concomitant]
     Active Substance: OXYGEN
     Indication: TACHYPNOEA
  6. REMDESIVIR. [Concomitant]
     Active Substance: REMDESIVIR
     Indication: HYPOXIA
     Dosage: DAILY ON DAYS 2?10
     Route: 042
  7. HYDROXYCHLOROQUINE [Concomitant]
     Active Substance: HYDROXYCHLOROQUINE
     Indication: TACHYPNOEA
  8. HYDROXYCHLOROQUINE [Concomitant]
     Active Substance: HYDROXYCHLOROQUINE
     Indication: HYPOXIA

REACTIONS (2)
  - No adverse event [Unknown]
  - Off label use [Unknown]
